FAERS Safety Report 10958380 (Version 1)
Quarter: 2015Q1

REPORT INFORMATION
  Report Type: Spontaneous
  Country: PL (occurrence: PL)
  Receive Date: 20150326
  Receipt Date: 20150326
  Transmission Date: 20150721
  Serious: Yes (Hospitalization, Other)
  Sender: FDA-Public Use
  Company Number: PL-GLAXOSMITHKLINE-PL2015GSK039803

PATIENT
  Age: 77 Year
  Sex: Female

DRUGS (1)
  1. PROPAFENONE. [Suspect]
     Active Substance: PROPAFENONE
     Dosage: 300 MG, BID
     Route: 048

REACTIONS (8)
  - Pacemaker generated arrhythmia [Unknown]
  - Dizziness [Unknown]
  - Syncope [Unknown]
  - Nausea [Unknown]
  - Loss of consciousness [Unknown]
  - Electrocardiogram QRS complex shortened [Unknown]
  - Palpitations [Unknown]
  - Cardiac arrest [Unknown]
